FAERS Safety Report 9702353 (Version 1)
Quarter: 2013Q4

REPORT INFORMATION
  Report Type: Report from Study
  Country: GB (occurrence: GB)
  Receive Date: 20131121
  Receipt Date: 20131121
  Transmission Date: 20140711
  Serious: Yes (Hospitalization)
  Sender: FDA-Public Use
  Company Number: GB-UCBSA-103662

PATIENT
  Age: 65 Year
  Sex: Male

DRUGS (2)
  1. CERTOLIZUMAB [Suspect]
     Indication: RHEUMATOID ARTHRITIS
     Route: 058
     Dates: start: 20110115, end: 20110615
  2. SULPHASALAZINE [Concomitant]
     Indication: RHEUMATOID ARTHRITIS
     Dosage: PRE 2004

REACTIONS (2)
  - Localised infection [Recovering/Resolving]
  - Arthralgia [Recovering/Resolving]
